FAERS Safety Report 5103410-2 (Version None)
Quarter: 2006Q3

REPORT INFORMATION
  Report Type: 
  Country: None (occurrence: None)
  Receive Date: 20060908
  Receipt Date: 20060901
  Transmission Date: 20061208
  Serious: Yes (Other)
  Sender: FDA-Public Use
  Company Number: 2006106117

PATIENT
  Age: 43 Year
  Sex: Female
  Weight: 68.0396 kg

DRUGS (2)
  1. ZOLOFT [Suspect]
     Indication: ANXIETY
     Dosage: 50 MG
     Dates: start: 20060721
  2. ZOLOFT [Suspect]
     Indication: DEPRESSION
     Dosage: 50 MG
     Dates: start: 20060721

REACTIONS (3)
  - ANOREXIA [None]
  - CHOKING [None]
  - DIARRHOEA [None]
